APPROVED DRUG PRODUCT: HYDROXYZINE HYDROCHLORIDE
Active Ingredient: HYDROXYZINE HYDROCHLORIDE
Strength: 10MG
Dosage Form/Route: TABLET;ORAL
Application: A089071 | Product #001
Applicant: ACTAVIS ELIZABETH LLC
Approved: Jul 22, 1986 | RLD: No | RS: No | Type: DISCN